FAERS Safety Report 9454807 (Version 5)
Quarter: 2016Q1

REPORT INFORMATION
  Report Type: Report from Study
  Country: JP (occurrence: JP)
  Receive Date: 20130812
  Receipt Date: 20160209
  Transmission Date: 20160526
  Serious: Yes (Death, Life-Threatening, Hospitalization, Other)
  Sender: FDA-Public Use
  Company Number: PHHY2013JP071943

PATIENT
  Age: 84 Year
  Sex: Female
  Weight: 31 kg

DRUGS (15)
  1. EXELON PATCH [Suspect]
     Active Substance: RIVASTIGMINE
     Dosage: PATCH 5CM2 (9 MG), QD
     Route: 062
     Dates: start: 20130411, end: 20130508
  2. EXELON PATCH [Suspect]
     Active Substance: RIVASTIGMINE
     Dosage: PATCH 7.5CM2 (13.5 MG), QD
     Route: 062
     Dates: start: 20130509, end: 20130605
  3. EXELON PATCH [Suspect]
     Active Substance: RIVASTIGMINE
     Dosage: PATCH 7.5CM2 (13.5 MG), QD
     Route: 062
     Dates: start: 20130509
  4. AMEZININ [Concomitant]
     Indication: ORTHOSTATIC HYPOTENSION
     Dosage: 20 MG, UNK
     Route: 048
     Dates: end: 20130429
  5. THEO-DUR [Concomitant]
     Active Substance: THEOPHYLLINE ANHYDROUS
     Indication: BRONCHITIS CHRONIC
     Dosage: 200 MG, UNK
     Route: 048
     Dates: end: 20130429
  6. NEUPRO [Concomitant]
     Active Substance: ROTIGOTINE
     Dosage: 9 MG
     Route: 065
     Dates: end: 20130605
  7. EXELON PATCH [Suspect]
     Active Substance: RIVASTIGMINE
     Indication: DEMENTIA ALZHEIMER^S TYPE
     Dosage: PATCH 2.5 CM2 (4.5 MG), QD
     Route: 062
     Dates: start: 20130312, end: 20130410
  8. MYSLEE [Concomitant]
     Active Substance: ZOLPIDEM TARTRATE
     Indication: INSOMNIA
     Dosage: 5 MG, UNK
     Route: 048
     Dates: end: 20130429
  9. NEUPRO [Concomitant]
     Active Substance: ROTIGOTINE
     Indication: PARKINSON^S DISEASE
     Dosage: 4.5 MG, UNK
     Route: 065
     Dates: start: 20130424
  10. ARICEPT [Concomitant]
     Active Substance: DONEPEZIL HYDROCHLORIDE
     Indication: DEMENTIA ALZHEIMER^S TYPE
     Dosage: 5 MG, UNK
     Route: 048
     Dates: end: 20130311
  11. BFLUID [Concomitant]
     Active Substance: AMINO ACIDS\DEXTROSE\ELECTROLYTES NOS\VITAMINS
     Indication: EATING DISORDER
     Dosage: 500 ML, UNK
     Route: 042
  12. MEMARY [Concomitant]
     Active Substance: MEMANTINE HYDROCHLORIDE
     Indication: DEMENTIA ALZHEIMER^S TYPE
     Dosage: 10 MG, UNK
     Route: 065
     Dates: end: 20130311
  13. TAKEPRON [Concomitant]
     Active Substance: LANSOPRAZOLE
     Indication: GASTRITIS
     Dosage: 15 MG, UNK
     Route: 048
     Dates: end: 20130429
  14. VEEN-F [Concomitant]
     Indication: EATING DISORDER
     Dosage: 500 ML, UNK
     Route: 042
  15. NEODOPASTON [Concomitant]
     Active Substance: CARBIDOPA\LEVODOPA
     Indication: PARKINSON^S DISEASE
     Dosage: 300 MG, UNK
     Route: 048
     Dates: end: 20130429

REACTIONS (10)
  - Malnutrition [Unknown]
  - Feeding disorder [Not Recovered/Not Resolved]
  - General physical health deterioration [Unknown]
  - Multiple organ dysfunction syndrome [Fatal]
  - Eczema [Not Recovered/Not Resolved]
  - Dysphagia [Unknown]
  - Blepharitis [Recovering/Resolving]
  - Diarrhoea [Not Recovered/Not Resolved]
  - Disseminated intravascular coagulation [Fatal]
  - Dementia [Unknown]

NARRATIVE: CASE EVENT DATE: 20130502
